FAERS Safety Report 9761203 (Version 4)
Quarter: 2014Q1

REPORT INFORMATION
  Report Type: Spontaneous
  Country: IT (occurrence: None)
  Receive Date: 20131212
  Receipt Date: 20140218
  Transmission Date: 20141002
  Serious: Yes (Hospitalization)
  Sender: FDA-Public Use
  Company Number: 2013-003849

PATIENT
  Age: 70 Year
  Sex: Female

DRUGS (7)
  1. ACTONEL (RISEDRONATE SODIUM) TABLET, UNKMG [Suspect]
     Indication: SUICIDE ATTEMPT
     Dosage: 3 DOSE FORMS TOTAL, ORAL
     Route: 048
     Dates: start: 20131108, end: 20131108
  2. PATROL (PARACETAMOL, TRAMADOL HYDOCHLORIDE) 325/37.5MG? [Suspect]
     Indication: SUICIDE ATTEMPT
     Dosage: 7 DOSE FROMS TOTAL, ORAL
     Route: 048
     Dates: start: 20131108, end: 20131108
  3. PALEXIA [Suspect]
     Indication: SUICIDE ATTEMPT
     Dosage: 9 DOSE FORMS TOTAL, ORAL
     Route: 048
     Dates: start: 20131108, end: 20131108
  4. ACETAMOL /00020001/ (PARACETAMOL) 500 MG [Suspect]
     Indication: SUICIDE ATTEMPT
     Dosage: 4 DOSE FORMS TOTAL, ORAL
     Route: 048
     Dates: start: 20131108, end: 20131108
  5. GABAPENTIN (GABAPENTIN) [Suspect]
     Indication: SUICIDE ATTEMPT
     Dosage: 14 DOSE FORMS TOTAL, ORAL
     Route: 048
     Dates: start: 20131108, end: 20131108
  6. HOMEOPATHIC PREPARATION [Concomitant]
  7. HOMEOPATHIC PREPARATION [Concomitant]

REACTIONS (5)
  - Depressed level of consciousness [None]
  - Confusional state [None]
  - Drug abuse [None]
  - Suicide attempt [None]
  - Depressed level of consciousness [None]
